FAERS Safety Report 9233123 (Version 1)
Quarter: 2013Q1

REPORT INFORMATION
  Report Type: Spontaneous
  Country: US (occurrence: None)
  Receive Date: 20121031
  Receipt Date: 20121031
  Transmission Date: 20140127
  Serious: No
  Sender: FDA-Public Use
  Company Number: PHHY2012US068882

PATIENT
  Age: 59 Year
  Sex: Female

DRUGS (6)
  1. GILENYA [Suspect]
     Route: 048
  2. LOSARTAN POTASSIUM (LOSARTAN POTASSIUM) [Concomitant]
  3. TORSEMIDE [Concomitant]
  4. CYMBALTA (DULOXETINE HYDROCHLORIDE) CAPSULE [Concomitant]
  5. MULTIVITIAMINS ESSENT (ASCORBIC ACID, ERGOCALCIFEROL, FOLIC ACID, NICOTINAMIDE, PANTHENOL, RETINOL, RIBOFLAVIN, THIAMINE HYDROCHLORIDE) [Concomitant]
  6. KRILL OIL [Concomitant]

REACTIONS (2)
  - Hypotension [None]
  - Vision blurred [None]
